FAERS Safety Report 18060093 (Version 1)
Quarter: 2020Q3

REPORT INFORMATION
  Report Type: Spontaneous
  Country: US (occurrence: US)
  Receive Date: 20200723
  Receipt Date: 20200723
  Transmission Date: 20201103
  Serious: Yes (Other)
  Sender: FDA-Public Use
  Company Number: US-SA-2020SA186553

PATIENT

DRUGS (1)
  1. ARTHRITIS HOT [Suspect]
     Active Substance: MENTHOL\METHYL SALICYLATE

REACTIONS (2)
  - Arthritis [Unknown]
  - Inflammation [Unknown]
